FAERS Safety Report 14199891 (Version 5)
Quarter: 2018Q2

REPORT INFORMATION
  Report Type: Report from Study
  Country: JP (occurrence: JP)
  Receive Date: 20171117
  Receipt Date: 20180615
  Transmission Date: 20180711
  Serious: Yes (Death, Hospitalization, Other)
  Sender: FDA-Public Use
  Company Number: JP-JNJFOC-20170701091

PATIENT
  Age: 72 Year
  Sex: Male
  Weight: 47 kg

DRUGS (21)
  1. RAMOSETRON HYDROCHLORIDE [Concomitant]
     Active Substance: RAMOSETRON HYDROCHLORIDE
     Indication: PROPHYLAXIS
     Route: 048
     Dates: start: 20170428, end: 20170502
  2. DECADRON [Concomitant]
     Active Substance: DEXAMETHASONE
     Indication: PROPHYLAXIS
     Dosage: DOSAGE FORM: PERORAL MEDICINE
     Route: 048
     Dates: start: 20170502, end: 20170524
  3. ROPION [Concomitant]
     Active Substance: FLURBIPROFEN AXETIL
     Indication: MANTLE CELL LYMPHOMA REFRACTORY
     Route: 065
     Dates: start: 20171125, end: 20171205
  4. RITUXAN [Suspect]
     Active Substance: RITUXIMAB
     Indication: MANTLE CELL LYMPHOMA REFRACTORY
     Route: 065
     Dates: start: 20171114, end: 20171114
  5. SAXIZON [Concomitant]
     Active Substance: HYDROCORTISONE SODIUM SUCCINATE
     Indication: PROPHYLAXIS
     Route: 065
     Dates: start: 20170428, end: 20170428
  6. DECADRON [Concomitant]
     Active Substance: DEXAMETHASONE
     Indication: PROPHYLAXIS
     Route: 048
     Dates: start: 20171102, end: 20171123
  7. MORPHINE HYDROCHLORIDE [Concomitant]
     Active Substance: MORPHINE HYDROCHLORIDE
     Indication: MANTLE CELL LYMPHOMA REFRACTORY
     Route: 065
     Dates: start: 20171125, end: 20171205
  8. IMBRUVICA [Suspect]
     Active Substance: IBRUTINIB
     Indication: MANTLE CELL LYMPHOMA REFRACTORY
     Route: 048
     Dates: start: 20170428, end: 20170502
  9. IMBRUVICA [Suspect]
     Active Substance: IBRUTINIB
     Indication: MANTLE CELL LYMPHOMA REFRACTORY
     Route: 048
     Dates: start: 20170504, end: 20170619
  10. DECADRON [Concomitant]
     Active Substance: DEXAMETHASONE
     Indication: PROPHYLAXIS
     Route: 048
     Dates: start: 20170525, end: 20170618
  11. DECADRON [Concomitant]
     Active Substance: DEXAMETHASONE
     Indication: PROPHYLAXIS
     Route: 048
     Dates: start: 20170630, end: 20170727
  12. IMBRUVICA [Suspect]
     Active Substance: IBRUTINIB
     Indication: MANTLE CELL LYMPHOMA REFRACTORY
     Route: 048
     Dates: start: 20170627, end: 20170710
  13. LEUSTATIN [Suspect]
     Active Substance: CLADRIBINE
     Indication: MANTLE CELL LYMPHOMA REFRACTORY
     Route: 041
     Dates: start: 20171115, end: 20171118
  14. IMBRUVICA [Suspect]
     Active Substance: IBRUTINIB
     Indication: MANTLE CELL LYMPHOMA REFRACTORY
     Route: 048
     Dates: start: 20170711, end: 20170906
  15. IMBRUVICA [Suspect]
     Active Substance: IBRUTINIB
     Indication: MANTLE CELL LYMPHOMA REFRACTORY
     Route: 048
     Dates: start: 20170907, end: 20171028
  16. IMBRUVICA [Suspect]
     Active Substance: IBRUTINIB
     Indication: MANTLE CELL LYMPHOMA REFRACTORY
     Route: 048
     Dates: start: 20171103, end: 20171113
  17. DEXAMETHASONE. [Concomitant]
     Active Substance: DEXAMETHASONE
     Route: 048
     Dates: start: 20170501
  18. AZASETRON HYDROCHLORIDE [Concomitant]
     Active Substance: AZASETRON HYDROCHLORIDE
     Indication: PROPHYLAXIS
     Route: 065
     Dates: start: 20171115, end: 20171118
  19. PREDONINE [Concomitant]
     Active Substance: PREDNISOLONE
     Route: 065
     Dates: start: 20171119, end: 20171204
  20. MEROPENEM. [Concomitant]
     Active Substance: MEROPENEM
     Indication: MANTLE CELL LYMPHOMA REFRACTORY
     Route: 065
     Dates: start: 20171125, end: 20171125
  21. IMBRUVICA [Suspect]
     Active Substance: IBRUTINIB
     Indication: MANTLE CELL LYMPHOMA REFRACTORY
     Route: 048
     Dates: start: 20171124, end: 20171130

REACTIONS (12)
  - Ascites [Recovering/Resolving]
  - Cellulitis [Recovered/Resolved]
  - Pyrexia [Recovered/Resolved]
  - Mantle cell lymphoma refractory [Fatal]
  - Stomatitis [Recovering/Resolving]
  - Malaise [Recovered/Resolved]
  - Infection [Recovered/Resolved]
  - Dyspnoea [Recovered/Resolved]
  - Decreased appetite [Recovered/Resolved]
  - Diarrhoea [Recovered/Resolved]
  - Headache [Recovered/Resolved]
  - Dizziness [Recovered/Resolved]

NARRATIVE: CASE EVENT DATE: 20170428
